FAERS Safety Report 12573051 (Version 1)
Quarter: 2016Q3

REPORT INFORMATION
  Report Type: Spontaneous
  Country: US (occurrence: None)
  Receive Date: 20160719
  Receipt Date: 20160719
  Transmission Date: 20161109
  Serious: Yes (Other)
  Sender: FDA-Public Use
  Company Number: None

PATIENT
  Age: 73 Year
  Sex: Male
  Weight: 78.93 kg

DRUGS (1)
  1. IBUPROFEN, 800MG [Suspect]
     Active Substance: IBUPROFEN
     Indication: PAIN
     Route: 048
     Dates: start: 20160102, end: 20160116

REACTIONS (1)
  - Cyst [None]

NARRATIVE: CASE EVENT DATE: 20160102
